FAERS Safety Report 5199585-X (Version None)
Quarter: 2007Q1

REPORT INFORMATION
  Report Type: 
  Country: None (occurrence: None)
  Receive Date: 20070103
  Receipt Date: 20070103
  Transmission Date: 20070707
  Serious: No
  Sender: FDA-Public Use
  Company Number: None

PATIENT
  Sex: Female
  Weight: 54.8852 kg

DRUGS (4)
  1. COPAXONE [Suspect]
     Indication: MULTIPLE SCLEROSIS
     Dosage: ONE QD SQ
     Route: 058
     Dates: start: 20060907, end: 20061201
  2. PREDNISONE [Concomitant]
  3. PLAVIX [Concomitant]
  4. PROVIGIL [Concomitant]

REACTIONS (1)
  - URTICARIA [None]
